FAERS Safety Report 15907658 (Version 1)
Quarter: 2019Q1

REPORT INFORMATION
  Report Type: Spontaneous
  Country: US (occurrence: US)
  Receive Date: 20190204
  Receipt Date: 20190204
  Transmission Date: 20190417
  Serious: Yes (Other)
  Sender: FDA-Public Use
  Company Number: None

PATIENT
  Age: 70 Year
  Sex: Female
  Weight: 96.3 kg

DRUGS (6)
  1. OXYCODONE [Concomitant]
     Active Substance: OXYCODONE
  2. XGEVA [Concomitant]
     Active Substance: DENOSUMAB
  3. MULTIVITAMIN ADULT [Concomitant]
  4. LETROZOLE. [Concomitant]
     Active Substance: LETROZOLE
  5. IBRANCE [Suspect]
     Active Substance: PALBOCICLIB
     Indication: BREAST CANCER FEMALE
     Route: 048
     Dates: start: 20190110
  6. CALCIUM 500 + VITAMIN D3 [Concomitant]

REACTIONS (1)
  - Epistaxis [None]

NARRATIVE: CASE EVENT DATE: 20190204
